FAERS Safety Report 9424402 (Version 2)
Quarter: 2013Q3

REPORT INFORMATION
  Report Type: Spontaneous
  Country: DE (occurrence: DE)
  Receive Date: 20130729
  Receipt Date: 20130806
  Transmission Date: 20140515
  Serious: Yes (Death, Hospitalization)
  Sender: FDA-Public Use
  Company Number: DE-JNJFOC-20130714253

PATIENT
  Sex: Male

DRUGS (6)
  1. XARELTO [Suspect]
     Indication: CEREBROVASCULAR ACCIDENT PROPHYLAXIS
     Route: 048
     Dates: start: 201303
  2. XARELTO [Suspect]
     Indication: ATRIAL FIBRILLATION
     Route: 048
     Dates: start: 201303
  3. METOHEXAL [Concomitant]
     Route: 065
  4. TAMSULOSIN [Concomitant]
     Route: 065
  5. PANTOZOL [Concomitant]
     Route: 065
  6. VENLAFAXINE [Concomitant]
     Route: 065

REACTIONS (3)
  - Brain stem haemorrhage [Fatal]
  - Cerebral haemorrhage [Fatal]
  - Fall [Unknown]
